FAERS Safety Report 17516290 (Version 1)
Quarter: 2020Q1

REPORT INFORMATION
  Report Type: Spontaneous
  Country: US (occurrence: US)
  Receive Date: 20200309
  Receipt Date: 20200309
  Transmission Date: 20200409
  Serious: No
  Sender: FDA-Public Use
  Company Number: US-BAUSCH-BL-2020-004791

PATIENT
  Age: 87 Year
  Sex: Female

DRUGS (1)
  1. TOBRAMYCIN AND DEXAMETHASONE [Suspect]
     Active Substance: DEXAMETHASONE\TOBRAMYCIN
     Indication: EYE INFECTION
     Dosage: 1 DROP IN BOTH EYES, 0.3 PERCENT/0.1 PERCENT
     Route: 047
     Dates: start: 20200207

REACTIONS (2)
  - Abnormal sensation in eye [Unknown]
  - Eye irritation [Unknown]

NARRATIVE: CASE EVENT DATE: 202002
